FAERS Safety Report 8219744-9 (Version None)
Quarter: 2012Q1

REPORT INFORMATION
  Report Type: 
  Country: None (occurrence: None)
  Receive Date: 20120319
  Receipt Date: 20120313
  Transmission Date: 20120608
  Serious: Yes (Life-Threatening, Hospitalization, Other)
  Sender: FDA-Public Use
  Company Number: US-ASTRAZENECA-2011SE34955

PATIENT
  Age: 50 Year
  Sex: Female

DRUGS (74)
  1. SEROQUEL [Suspect]
     Indication: BIPOLAR DISORDER
     Dosage: 100 MG- 300 MG
     Route: 048
     Dates: start: 20000201, end: 20090101
  2. SEROQUEL [Suspect]
     Route: 048
     Dates: start: 20100621, end: 20110531
  3. SEROQUEL [Suspect]
     Route: 048
     Dates: start: 20020402
  4. SEROQUEL [Suspect]
     Route: 048
     Dates: start: 20051015
  5. SEROQUEL [Suspect]
     Route: 048
     Dates: start: 20060908
  6. SEROQUEL [Suspect]
     Route: 048
     Dates: start: 20070330
  7. SEROQUEL [Suspect]
     Route: 048
     Dates: start: 20050308
  8. SEROQUEL [Suspect]
     Route: 048
     Dates: start: 20110513
  9. DEPAKOTE [Concomitant]
     Dates: start: 20110613
  10. PROZAC [Concomitant]
     Route: 048
     Dates: start: 20020808
  11. FLUOXETINE [Concomitant]
     Dates: start: 20030922
  12. ESKALITH CR [Concomitant]
     Route: 048
     Dates: start: 20050303
  13. ESKALITH CR [Concomitant]
     Route: 048
     Dates: start: 20060123
  14. SEROQUEL [Suspect]
     Route: 048
     Dates: start: 20001110
  15. SEROQUEL [Suspect]
     Route: 048
     Dates: start: 20010827
  16. SEROQUEL [Suspect]
     Route: 048
     Dates: start: 20070720
  17. SEROQUEL [Suspect]
     Dosage: 100 MG- 300 MG
     Route: 048
     Dates: start: 20021216
  18. SEROQUEL [Suspect]
     Dosage: 100 MG- 300 MG
     Route: 048
     Dates: start: 20030825
  19. SYNTHROID [Concomitant]
     Dates: start: 20051108
  20. PROZAC [Concomitant]
     Route: 048
     Dates: start: 20020821
  21. FLUOXETINE [Concomitant]
     Route: 048
     Dates: start: 20040225
  22. ESKALITH CR [Concomitant]
     Route: 048
     Dates: start: 20070226
  23. ESKALITH CR [Concomitant]
     Route: 048
     Dates: start: 20070302
  24. SEROQUEL [Suspect]
     Route: 048
     Dates: start: 20011218
  25. SEROQUEL [Suspect]
     Route: 048
     Dates: start: 20020117
  26. SEROQUEL [Suspect]
     Route: 048
     Dates: start: 20050630
  27. SEROQUEL [Suspect]
     Dosage: 100 MG- 300 MG
     Route: 048
     Dates: start: 20020821
  28. SEROQUEL [Suspect]
     Dosage: 100 MG- 300 MG
     Route: 048
     Dates: start: 20030922
  29. LITHIUM CARBONATE [Suspect]
     Indication: BIPOLAR DISORDER
     Route: 048
     Dates: start: 20050308, end: 20110615
  30. DEPAKOTE [Concomitant]
     Route: 048
     Dates: start: 20020808
  31. FLUOXETINE [Concomitant]
     Route: 048
     Dates: start: 20030922
  32. ESKALITH CR [Concomitant]
     Route: 048
     Dates: start: 20060616
  33. ESKALITH CR [Concomitant]
     Route: 048
     Dates: start: 20070330
  34. SEROQUEL [Suspect]
     Route: 048
     Dates: start: 20000229
  35. SEROQUEL [Suspect]
     Route: 048
     Dates: start: 20010727
  36. SEROQUEL [Suspect]
     Route: 048
     Dates: start: 20010823
  37. SEROQUEL [Suspect]
     Route: 048
     Dates: start: 20060123
  38. SEROQUEL [Suspect]
     Route: 048
     Dates: start: 20060324
  39. SEROQUEL [Suspect]
     Dosage: 100 MG- 300 MG
     Route: 048
     Dates: start: 20020506
  40. SEROQUEL [Suspect]
     Route: 048
     Dates: start: 20100621, end: 20110531
  41. ESKALITH CR [Concomitant]
     Route: 048
     Dates: start: 20050503
  42. ESKALITH CR [Concomitant]
     Route: 048
     Dates: start: 20070326
  43. SEROQUEL [Suspect]
     Route: 048
     Dates: start: 20010531
  44. SEROQUEL [Suspect]
     Route: 048
     Dates: start: 20020110
  45. SEROQUEL [Suspect]
     Route: 048
     Dates: start: 20051128
  46. SEROQUEL [Suspect]
     Route: 048
     Dates: start: 20100621
  47. SEROQUEL [Suspect]
     Route: 048
     Dates: start: 20110110
  48. DEPAKOTE [Concomitant]
     Route: 048
     Dates: start: 20020821
  49. DEPAKOTE [Concomitant]
     Route: 048
     Dates: start: 20020823
  50. ESKALITH CR [Concomitant]
     Route: 048
     Dates: start: 20060324
  51. ESKALITH CR [Concomitant]
     Route: 048
     Dates: start: 20060908
  52. ESKALITH CR [Concomitant]
     Route: 048
     Dates: start: 20061227
  53. ESKALITH CR [Concomitant]
     Route: 048
     Dates: start: 20070627
  54. ESKALITH CR [Concomitant]
     Route: 048
     Dates: start: 20070720
  55. SEROQUEL [Suspect]
     Route: 048
     Dates: start: 20000523
  56. SEROQUEL [Suspect]
     Route: 048
     Dates: start: 20010606
  57. SEROQUEL [Suspect]
     Route: 048
     Dates: start: 20060530
  58. SEROQUEL [Suspect]
     Route: 048
     Dates: start: 20060616
  59. SEROQUEL [Suspect]
     Dosage: 100 MG- 300 MG
     Route: 048
     Dates: start: 20020808
  60. SEROQUEL [Suspect]
     Dosage: 100 MG- 300 MG
     Route: 048
     Dates: start: 20030627
  61. SEROQUEL [Suspect]
     Route: 048
     Dates: start: 20030930
  62. SEROQUEL [Suspect]
     Route: 048
     Dates: start: 20110308
  63. PROZAC [Concomitant]
     Route: 048
     Dates: start: 20021216
  64. PROZAC [Concomitant]
     Route: 048
     Dates: start: 20030930
  65. ESKALITH CR [Concomitant]
     Route: 048
     Dates: start: 20050725
  66. DEPAKOTE [Concomitant]
     Route: 048
     Dates: start: 20021019
  67. DEPAKOTE [Concomitant]
     Route: 048
     Dates: start: 20021216
  68. PROZAC [Concomitant]
     Route: 048
     Dates: start: 20020823
  69. SEROQUEL [Suspect]
     Route: 048
     Dates: start: 20010827
  70. SEROQUEL [Suspect]
     Route: 048
     Dates: start: 20050822
  71. SEROQUEL [Suspect]
     Route: 048
     Dates: start: 20061227
  72. SEROQUEL [Suspect]
     Dosage: 100 MG- 300 MG
     Route: 048
     Dates: start: 20020823
  73. DEPAKOTE [Concomitant]
     Route: 048
     Dates: start: 20021212
  74. FLUOXETINE [Concomitant]
     Route: 048
     Dates: start: 20020506

REACTIONS (5)
  - RASH [None]
  - VENTRICULAR TACHYCARDIA [None]
  - NERVOUSNESS [None]
  - TREMOR [None]
  - SOMNOLENCE [None]
